FAERS Safety Report 7001350-5 (Version None)
Quarter: 2010Q3

REPORT INFORMATION
  Report Type: 
  Country: None (occurrence: None)
  Receive Date: 20100920
  Receipt Date: 20100607
  Transmission Date: 20110219
  Serious: No
  Sender: FDA-Public Use
  Company Number: US-ASTRAZENECA-2010SE26155

PATIENT
  Age: 52 Year
  Sex: Female

DRUGS (7)
  1. SEROQUEL [Suspect]
     Route: 048
  2. INSULIN [Concomitant]
  3. KLONOPIN [Concomitant]
  4. LITHIUM [Concomitant]
  5. REGLAN [Concomitant]
  6. BLOOD PRESSURE MEDICINE [Concomitant]
  7. LEG CRAMP MEDICINE [Concomitant]

REACTIONS (6)
  - DIARRHOEA [None]
  - DRY MOUTH [None]
  - HYPERHIDROSIS [None]
  - MEDICATION ERROR [None]
  - NAUSEA [None]
  - TREMOR [None]
